FAERS Safety Report 9176212 (Version 1)
Quarter: 2013Q1

REPORT INFORMATION
  Report Type: Spontaneous
  Country: US (occurrence: US)
  Receive Date: 20130321
  Receipt Date: 20130321
  Transmission Date: 20140127
  Serious: Yes (Other)
  Sender: FDA-Public Use
  Company Number: US-AMGEN-USASP2013018866

PATIENT
  Age: 52 Year
  Sex: Female

DRUGS (2)
  1. ENBREL [Suspect]
     Indication: RHEUMATOID ARTHRITIS
     Dosage: 50 MG, QWK
     Dates: start: 20100301, end: 20130224
  2. METHOTREXATE [Concomitant]
     Dosage: UNK

REACTIONS (4)
  - Pleuritic pain [Recovered/Resolved]
  - Aphonia [Recovered/Resolved]
  - Sneezing [Recovered/Resolved]
  - Productive cough [Recovered/Resolved]
